FAERS Safety Report 18818419 (Version 2)
Quarter: 2021Q3

REPORT INFORMATION
  Report Type: Report from Study
  Country: GB (occurrence: GB)
  Receive Date: 20210201
  Receipt Date: 20210802
  Transmission Date: 20211014
  Serious: Yes (Other)
  Sender: FDA-Public Use
  Company Number: GB-MYLANLABS-2021M1005265

PATIENT
  Age: 50 Year
  Sex: Female

DRUGS (37)
  1. TRASTUZUMAB. [Suspect]
     Active Substance: TRASTUZUMAB
     Indication: BREAST CANCER METASTATIC
     Dosage: 600 MILLIGRAM, Q3W
     Route: 058
     Dates: start: 20151117
  2. FLOXACILLIN [Suspect]
     Active Substance: FLUCLOXACILLIN
     Dosage: 500 MILLIGRAM, Q4D
     Dates: start: 201609, end: 201609
  3. ASPIRIN. [Concomitant]
     Active Substance: ASPIRIN
     Dosage: 75 MILLIGRAM, QD
     Route: 048
  4. DEXAMETHASONE. [Concomitant]
     Active Substance: DEXAMETHASONE
     Dosage: 4 MILLIGRAM, QD
     Route: 048
     Dates: start: 20170927, end: 20170929
  5. DOMPERIDONE [Concomitant]
     Active Substance: DOMPERIDONE
     Indication: NAUSEA
     Dosage: 10 MILLIGRAM, TID
     Route: 048
     Dates: start: 20151117
  6. LATANOPROST. [Concomitant]
     Active Substance: LATANOPROST
     Dosage: 50 MICROGRAM, QD
     Route: 047
     Dates: start: 20131220
  7. PERTUZUMAB. [Suspect]
     Active Substance: PERTUZUMAB
     Indication: BREAST CANCER METASTATIC
     Dosage: 840 MILLIGRAM (LOADING DOSE1 CYCLE)
     Route: 042
     Dates: start: 20151117, end: 20151117
  8. AMITRIPTYLINE [Concomitant]
     Active Substance: AMITRIPTYLINE
     Indication: HEADACHE
     Dosage: 75 MILLIGRAM, QD
     Route: 048
     Dates: start: 201707
  9. DEXAMETHASONE. [Concomitant]
     Active Substance: DEXAMETHASONE
     Dosage: 2 MILLIGRAM, QD
     Route: 048
     Dates: start: 20170930, end: 20171208
  10. PARACETAMOL [Concomitant]
     Active Substance: ACETAMINOPHEN
     Dosage: 1 GRAM
     Route: 048
  11. BUSCOPAN [Concomitant]
     Active Substance: BUTYLSCOPOLAMINE BROMIDE
     Indication: IRRITABLE BOWEL SYNDROME
     Dosage: 10 MILLIGRAM (PRN (AS NEEDED))
     Route: 048
     Dates: start: 20191108
  12. DEXAMETHASONE. [Concomitant]
     Active Substance: DEXAMETHASONE
     Dosage: 8 MILLIGRAM, BID
     Route: 048
     Dates: start: 20170908, end: 20170919
  13. MUPIROCIN. [Concomitant]
     Active Substance: MUPIROCIN
     Indication: METASTASES TO CENTRAL NERVOUS SYSTEM
     Dosage: 1 GTT DROPS, TID (LIQUID)
     Route: 061
     Dates: start: 20170919, end: 20170920
  14. PARACETAMOL [Concomitant]
     Active Substance: ACETAMINOPHEN
     Indication: METASTASES TO CENTRAL NERVOUS SYSTEM
     Dosage: 1 GRAM
     Route: 048
     Dates: start: 20170918
  15. PACLITAXEL. [Suspect]
     Active Substance: PACLITAXEL
     Indication: BREAST CANCER METASTATIC
     Dosage: 140 MILLIGRAM, QW
     Route: 042
     Dates: start: 20151210, end: 20160916
  16. DIAZEPAM. [Suspect]
     Active Substance: DIAZEPAM
     Indication: ANXIETY
     Dosage: 2 MILLIGRAM, TID
     Route: 048
     Dates: start: 20160223
  17. HIBISCRUB [Suspect]
     Active Substance: CHLORHEXIDINE GLUCONATE
     Indication: SKIN INFECTION
     Dosage: 10 MILLILITER, QD
     Route: 061
     Dates: start: 20160407
  18. DEXAMETHASONE. [Concomitant]
     Active Substance: DEXAMETHASONE
     Indication: METASTASES TO CENTRAL NERVOUS SYSTEM
     Dosage: 8 MILLIGRAM, QD
     Route: 048
     Dates: start: 20170920, end: 20170920
  19. DEXAMETHASONE. [Concomitant]
     Active Substance: DEXAMETHASONE
     Dosage: 4 MILLIGRAM, TID
     Route: 048
     Dates: start: 20170921, end: 20170923
  20. DEXAMETHASONE. [Concomitant]
     Active Substance: DEXAMETHASONE
     Dosage: 4 MILLIGRAM, BID
     Route: 048
     Dates: start: 20170924, end: 20170926
  21. ORAMORPH [Concomitant]
     Active Substance: MORPHINE SULFATE
     Indication: MUSCLE SPASMS
     Dosage: PRN (AS NEEDED)
     Route: 048
     Dates: start: 20181012
  22. ORLISTAT. [Concomitant]
     Active Substance: ORLISTAT
     Dosage: 120 MILLIGRAM, TID
     Route: 048
     Dates: start: 20150127
  23. PERTUZUMAB. [Suspect]
     Active Substance: PERTUZUMAB
     Dosage: 420 MILLIGRAM (MAINTENANCE DOSE)
     Route: 042
     Dates: start: 20151209
  24. FLOXACILLIN [Suspect]
     Active Substance: FLUCLOXACILLIN
     Indication: SKIN INFECTION
     Dosage: 500 MILLIGRAM, Q4D
     Route: 048
     Dates: start: 20160223, end: 20160301
  25. LAXIDO [Suspect]
     Active Substance: POLYETHYLENE GLYCOL 3350\POTASSIUM CHLORIDE\SODIUM BICARBONATE\SODIUM CHLORIDE
     Indication: CONSTIPATION
     Dosage: UNK
     Route: 048
     Dates: start: 20160314
  26. AMLODIPINE [Concomitant]
     Active Substance: AMLODIPINE BESYLATE
     Indication: METASTASES TO CENTRAL NERVOUS SYSTEM
     Dosage: 10 MILLIGRAM (ONCE)
     Route: 048
     Dates: start: 20170919, end: 20170919
  27. ENOXAPARIN [Concomitant]
     Active Substance: ENOXAPARIN
     Indication: METASTASES TO CENTRAL NERVOUS SYSTEM
     Dosage: 40 MILLIGRAM, QD
     Route: 058
     Dates: start: 20170919, end: 20170921
  28. GENTAMICIN. [Concomitant]
     Active Substance: GENTAMICIN
     Indication: METASTASES TO CENTRAL NERVOUS SYSTEM
     Dosage: 240 MILLIGRAM (ONCE)
     Route: 048
     Dates: start: 20170918, end: 20170918
  29. OMEPRAZOLE. [Concomitant]
     Active Substance: OMEPRAZOLE
     Indication: METASTASES TO CENTRAL NERVOUS SYSTEM
     Dosage: 8 MILLIGRAM, QD
     Route: 048
     Dates: start: 20170918
  30. CO?AMOXICLAV [Suspect]
     Active Substance: AMOXICILLIN\CLAVULANATE POTASSIUM
     Indication: SKIN INFECTION
     Dosage: 125 MILLIGRAM, TID
     Route: 048
     Dates: start: 20160318, end: 20160323
  31. TIMOLOL. [Concomitant]
     Active Substance: TIMOLOL
     Dosage: 0.5 PERCENT, BID (LIQUID)
     Route: 047
     Dates: start: 20151021
  32. CYANOCOBALAMIN. [Concomitant]
     Active Substance: CYANOCOBALAMIN
     Dosage: UNK
  33. DOMPERIDONE [Concomitant]
     Active Substance: DOMPERIDONE
     Dosage: 10 MILLIGRAM, QD
     Route: 048
     Dates: start: 20151117
  34. DOCETAXEL. [Suspect]
     Active Substance: DOCETAXEL
     Indication: BREAST CANCER METASTATIC
     Dosage: 130 MILLIGRAM (1 CYCLE)
     Route: 042
     Dates: start: 20151119, end: 20151204
  35. HARTMANN^S SOLUTION [Concomitant]
     Active Substance: CALCIUM CHLORIDE\POTASSIUM CHLORIDE\SODIUM CHLORIDE\SODIUM LACTATE
     Indication: METASTASES TO CENTRAL NERVOUS SYSTEM
     Dosage: SOLUTION
     Route: 042
     Dates: start: 20170918, end: 20170918
  36. IBUPROFEN. [Concomitant]
     Active Substance: IBUPROFEN
     Dosage: 400 MILLIGRAM, QID
     Route: 048
     Dates: start: 20170830
  37. MORPHINE SULFATE. [Concomitant]
     Active Substance: MORPHINE SULFATE
     Indication: METASTASES TO CENTRAL NERVOUS SYSTEM
     Dosage: 2 MILLIGRAM (SOLUTION)
     Route: 042
     Dates: start: 20170918, end: 20170918

REACTIONS (6)
  - Constipation [Recovered/Resolved]
  - Neuropathy peripheral [Recovered/Resolved]
  - Diarrhoea [Recovered/Resolved]
  - Anxiety [Not Recovered/Not Resolved]
  - Nausea [Not Recovered/Not Resolved]
  - Skin infection [Recovered/Resolved]

NARRATIVE: CASE EVENT DATE: 20151117
